FAERS Safety Report 4551522-4 (Version None)
Quarter: 2005Q1

REPORT INFORMATION
  Report Type: 
  Country: None (occurrence: None)
  Receive Date: 20050112
  Receipt Date: 20041231
  Transmission Date: 20050727
  Serious: Yes (Other)
  Sender: FDA-Public Use
  Company Number: 2005S1000014

PATIENT
  Age: 1 Day
  Sex: Male
  Weight: 3.7195 kg

DRUGS (8)
  1. INOMAX [Suspect]
     Indication: PULMONARY HYPERTENSION
     Dosage: 20 PPM; CONT; IH
     Route: 055
     Dates: start: 20041230, end: 20041231
  2. DOPAMINE HCL [Concomitant]
  3. SODIUM BICARBONATE [Concomitant]
  4. AMPICILLIN [Concomitant]
  5. NORMAL SALINE [Concomitant]
  6. FENTANYL [Concomitant]
  7. VERSED [Concomitant]
  8. BLOOD CELLS, PACKED HUMAN [Concomitant]

REACTIONS (1)
  - MEDICATION ERROR [None]
